FAERS Safety Report 17193871 (Version 2)
Quarter: 2020Q1

REPORT INFORMATION
  Report Type: Spontaneous
  Country: US (occurrence: US)
  Receive Date: 20191223
  Receipt Date: 20200225
  Transmission Date: 20200409
  Serious: Yes (Hospitalization, Other)
  Sender: FDA-Public Use
  Company Number: US-ALEXION PHARMACEUTICALS INC.-A201919875

PATIENT
  Age: 22 Year
  Sex: Female

DRUGS (1)
  1. SOLIRIS [Suspect]
     Active Substance: ECULIZUMAB
     Indication: ATYPICAL HAEMOLYTIC URAEMIC SYNDROME
     Dosage: UNK, SINGLE
     Route: 065

REACTIONS (9)
  - Ejection fraction decreased [Recovered/Resolved]
  - Thrombosis [Recovered/Resolved]
  - Cardiogenic shock [Recovered/Resolved]
  - Pulmonary arterial pressure increased [Recovered/Resolved]
  - Hypertrophy [Recovered/Resolved]
  - Cardiac failure [Recovered/Resolved]
  - Pulmonary arterial wedge pressure increased [Recovered/Resolved]
  - Hypersensitivity [Recovered/Resolved]
  - Myocarditis [Recovered/Resolved]
